FAERS Safety Report 19250919 (Version 2)
Quarter: 2021Q2

REPORT INFORMATION
  Report Type: Report from Study
  Country: AU (occurrence: AU)
  Receive Date: 20210512
  Receipt Date: 20210603
  Transmission Date: 20210717
  Serious: Yes (Hospitalization)
  Sender: FDA-Public Use
  Company Number: AU-CELGENEUS-AUS-20210500577

PATIENT
  Age: 81 Year
  Sex: Male

DRUGS (83)
  1. DEXAMETHASONE ORAL [Suspect]
     Active Substance: DEXAMETHASONE
     Dosage: 20 MILLIGRAM
     Route: 048
     Dates: start: 20210422, end: 20210422
  2. PANTOPRAZOLE [Concomitant]
     Active Substance: PANTOPRAZOLE
     Indication: PRODUCT USED FOR UNKNOWN INDICATION
     Route: 065
     Dates: start: 2007
  3. VITAMIN C [Concomitant]
     Active Substance: ASCORBIC ACID
     Route: 065
     Dates: start: 2010
  4. FLUCONAZOLE. [Concomitant]
     Active Substance: FLUCONAZOLE
     Route: 065
     Dates: start: 20200420
  5. VALACYCLOVIR [Concomitant]
     Active Substance: VALACYCLOVIR HYDROCHLORIDE
     Indication: PRODUCT USED FOR UNKNOWN INDICATION
     Route: 065
     Dates: start: 20200420
  6. LACTULOSE. [Concomitant]
     Active Substance: LACTULOSE
     Indication: PRODUCT USED FOR UNKNOWN INDICATION
     Route: 065
     Dates: start: 20200506
  7. QUESTRAN LITE [Concomitant]
     Indication: PRODUCT USED FOR UNKNOWN INDICATION
     Route: 065
     Dates: start: 20210104
  8. CHLORSIG [Concomitant]
     Active Substance: CHLORAMPHENICOL
     Indication: PRODUCT USED FOR UNKNOWN INDICATION
     Route: 065
     Dates: start: 20210216
  9. ESOMEPRAZOLE. [Concomitant]
     Active Substance: ESOMEPRAZOLE MAGNESIUM
     Route: 048
     Dates: start: 20210401, end: 20210401
  10. ISATUXIMAB [Suspect]
     Active Substance: ISATUXIMAB
     Dosage: 1400 MILLIGRAM
     Route: 058
     Dates: start: 20210415, end: 20210415
  11. COLECALCIFEROL [Concomitant]
     Active Substance: CHOLECALCIFEROL
     Route: 065
     Dates: start: 2010
  12. OMEGA 3 [Concomitant]
     Active Substance: OMEGA-3 FATTY ACIDS
     Indication: PRODUCT USED FOR UNKNOWN INDICATION
     Route: 065
     Dates: start: 2010
  13. MAXOLON [Concomitant]
     Active Substance: METOCLOPRAMIDE HYDROCHLORIDE
     Route: 065
     Dates: start: 20200420
  14. ENDONE [Concomitant]
     Active Substance: OXYCODONE HYDROCHLORIDE
     Route: 065
     Dates: start: 2010
  15. LOPERAMIDE [Concomitant]
     Active Substance: LOPERAMIDE
     Indication: PRODUCT USED FOR UNKNOWN INDICATION
     Route: 065
     Dates: start: 20200926
  16. HYDRALYTE [Concomitant]
     Route: 065
     Dates: start: 20200420
  17. METAMUCIL [Concomitant]
     Active Substance: PLANTAGO SEED
     Indication: PRODUCT USED FOR UNKNOWN INDICATION
     Route: 065
     Dates: start: 20200506
  18. MOVICOL [Concomitant]
     Active Substance: POLYETHYLENE GLYCOL 3350\POTASSIUM CHLORIDE\SODIUM BICARBONATE\SODIUM CHLORIDE
     Route: 065
     Dates: start: 20200420
  19. MICROLAX [Concomitant]
     Route: 065
     Dates: start: 20200420
  20. CHLORSIG [Concomitant]
     Active Substance: CHLORAMPHENICOL
     Route: 065
     Dates: start: 2010
  21. SWISSE CO?ENZYME [Concomitant]
     Route: 065
     Dates: start: 2010
  22. POMALIDOMIDE [Suspect]
     Active Substance: POMALIDOMIDE
     Indication: PLASMA CELL MYELOMA
     Dosage: 4 MILLIGRAM
     Route: 048
     Dates: start: 20210401, end: 20210421
  23. OMEGA 3 [Concomitant]
     Active Substance: OMEGA-3 FATTY ACIDS
     Route: 065
     Dates: start: 2010
  24. COLOXYL C SENNA [Concomitant]
     Active Substance: DOCUSATE SODIUM\SENNOSIDES A AND B
     Indication: PRODUCT USED FOR UNKNOWN INDICATION
     Route: 065
     Dates: start: 20200506
  25. ENDONE [Concomitant]
     Active Substance: OXYCODONE HYDROCHLORIDE
     Route: 065
     Dates: start: 20200420
  26. HYDRALYTE [Concomitant]
     Indication: PRODUCT USED FOR UNKNOWN INDICATION
     Route: 065
     Dates: start: 20200923
  27. CHLORSIG [Concomitant]
     Active Substance: CHLORAMPHENICOL
     Route: 065
     Dates: start: 20200420
  28. XARELTO [Concomitant]
     Active Substance: RIVAROXABAN
     Indication: PRODUCT USED FOR UNKNOWN INDICATION
     Route: 065
     Dates: start: 20210302
  29. POMALIDOMIDE [Suspect]
     Active Substance: POMALIDOMIDE
     Dosage: 4 MILLIGRAM
     Route: 048
  30. ISATUXIMAB [Suspect]
     Active Substance: ISATUXIMAB
     Indication: PLASMA CELL MYELOMA
     Dosage: 1400 MILLIGRAM
     Route: 058
     Dates: start: 20200420, end: 20200420
  31. VALACYCLOVIR [Concomitant]
     Active Substance: VALACYCLOVIR HYDROCHLORIDE
     Route: 065
     Dates: start: 2010
  32. VALACYCLOVIR [Concomitant]
     Active Substance: VALACYCLOVIR HYDROCHLORIDE
     Route: 065
     Dates: start: 20200420
  33. MAXOLON [Concomitant]
     Active Substance: METOCLOPRAMIDE HYDROCHLORIDE
     Indication: PRODUCT USED FOR UNKNOWN INDICATION
     Route: 065
     Dates: start: 20200521
  34. QUESTRAN LITE [Concomitant]
     Route: 065
     Dates: start: 20200420
  35. XARELTO [Concomitant]
     Active Substance: RIVAROXABAN
     Route: 065
     Dates: start: 2010
  36. LORATADINE. [Concomitant]
     Active Substance: LORATADINE
     Route: 048
     Dates: start: 20210216, end: 20210216
  37. LORATADINE. [Concomitant]
     Active Substance: LORATADINE
     Route: 048
     Dates: start: 20210302, end: 20210302
  38. PARACETAMOL [Concomitant]
     Active Substance: ACETAMINOPHEN
     Route: 065
     Dates: start: 20210317, end: 20210317
  39. COLECALCIFEROL [Concomitant]
     Active Substance: CHOLECALCIFEROL
     Indication: PRODUCT USED FOR UNKNOWN INDICATION
     Route: 065
     Dates: start: 2010
  40. LOPERAMIDE [Concomitant]
     Active Substance: LOPERAMIDE
     Route: 065
     Dates: start: 2010
  41. LOPERAMIDE [Concomitant]
     Active Substance: LOPERAMIDE
     Route: 065
     Dates: start: 20200420
  42. METAMUCIL [Concomitant]
     Active Substance: PLANTAGO SEED
     Route: 065
     Dates: start: 20200420
  43. MOVICOL [Concomitant]
     Active Substance: POLYETHYLENE GLYCOL 3350\POTASSIUM CHLORIDE\SODIUM BICARBONATE\SODIUM CHLORIDE
     Indication: PRODUCT USED FOR UNKNOWN INDICATION
     Route: 065
     Dates: start: 20200506
  44. MOVICOL [Concomitant]
     Active Substance: POLYETHYLENE GLYCOL 3350\POTASSIUM CHLORIDE\SODIUM BICARBONATE\SODIUM CHLORIDE
     Route: 065
     Dates: start: 2010
  45. LORATADINE. [Concomitant]
     Active Substance: LORATADINE
     Route: 048
     Dates: start: 20210401, end: 20210401
  46. SWISSE CO?ENZYME [Concomitant]
     Indication: PRODUCT USED FOR UNKNOWN INDICATION
     Route: 065
     Dates: start: 2010
  47. SWISSE CO?ENZYME [Concomitant]
     Route: 065
     Dates: start: 20200420
  48. PARACETAMOL [Concomitant]
     Active Substance: ACETAMINOPHEN
     Route: 048
     Dates: start: 20210203, end: 20210203
  49. ESOMEPRAZOLE. [Concomitant]
     Active Substance: ESOMEPRAZOLE MAGNESIUM
     Route: 048
     Dates: start: 20210203, end: 20210203
  50. DEXAMETHASONE ORAL [Suspect]
     Active Substance: DEXAMETHASONE
     Indication: PLASMA CELL MYELOMA
     Dosage: 20 MILLIGRAM
     Route: 048
  51. ROSUVASTATIN. [Concomitant]
     Active Substance: ROSUVASTATIN
     Indication: PRODUCT USED FOR UNKNOWN INDICATION
     Route: 065
     Dates: start: 2004
  52. VITAMIN C [Concomitant]
     Active Substance: ASCORBIC ACID
     Indication: PRODUCT USED FOR UNKNOWN INDICATION
     Route: 065
     Dates: start: 2019
  53. INNER HEALTH PLUS [Concomitant]
     Indication: PRODUCT USED FOR UNKNOWN INDICATION
     Route: 065
     Dates: start: 2010
  54. FLUCONAZOLE. [Concomitant]
     Active Substance: FLUCONAZOLE
     Indication: PRODUCT USED FOR UNKNOWN INDICATION
     Route: 065
     Dates: start: 20200420
  55. FLUCONAZOLE. [Concomitant]
     Active Substance: FLUCONAZOLE
     Route: 065
     Dates: start: 2010
  56. MAXOLON [Concomitant]
     Active Substance: METOCLOPRAMIDE HYDROCHLORIDE
     Route: 065
     Dates: start: 2010
  57. HYDRALYTE [Concomitant]
     Route: 065
     Dates: start: 2010
  58. METAMUCIL [Concomitant]
     Active Substance: PLANTAGO SEED
     Route: 065
     Dates: start: 2010
  59. XARELTO [Concomitant]
     Active Substance: RIVAROXABAN
     Route: 065
     Dates: start: 20200420
  60. PARACETAMOL [Concomitant]
     Active Substance: ACETAMINOPHEN
     Route: 048
     Dates: start: 20210302, end: 20210302
  61. PARACETAMOL [Concomitant]
     Active Substance: ACETAMINOPHEN
     Route: 065
     Dates: start: 20210401, end: 20210401
  62. ESOMEPRAZOLE. [Concomitant]
     Active Substance: ESOMEPRAZOLE MAGNESIUM
     Indication: PROPHYLAXIS
     Route: 065
     Dates: start: 20200420
  63. ESOMEPRAZOLE. [Concomitant]
     Active Substance: ESOMEPRAZOLE MAGNESIUM
     Route: 048
     Dates: start: 20210302, end: 20210302
  64. LISINOPRIL. [Concomitant]
     Active Substance: LISINOPRIL
     Indication: PRODUCT USED FOR UNKNOWN INDICATION
     Route: 065
     Dates: start: 2004
  65. INNER HEALTH PLUS [Concomitant]
     Route: 065
     Dates: start: 2010
  66. BACTRIM [Concomitant]
     Active Substance: SULFAMETHOXAZOLE\TRIMETHOPRIM
     Route: 065
     Dates: start: 20200420
  67. COLOXYL C SENNA [Concomitant]
     Active Substance: DOCUSATE SODIUM\SENNOSIDES A AND B
     Route: 065
     Dates: start: 2010
  68. COLOXYL C SENNA [Concomitant]
     Active Substance: DOCUSATE SODIUM\SENNOSIDES A AND B
     Route: 065
     Dates: start: 20200420
  69. LACTULOSE. [Concomitant]
     Active Substance: LACTULOSE
     Route: 065
     Dates: start: 2010
  70. LORATADINE. [Concomitant]
     Active Substance: LORATADINE
     Route: 048
     Dates: start: 20210317, end: 20210317
  71. LORATADINE. [Concomitant]
     Active Substance: LORATADINE
     Route: 065
     Dates: start: 20210415, end: 20210415
  72. PARACETAMOL [Concomitant]
     Active Substance: ACETAMINOPHEN
     Indication: PROPHYLAXIS
     Route: 065
     Dates: start: 20200511
  73. BACTRIM [Concomitant]
     Active Substance: SULFAMETHOXAZOLE\TRIMETHOPRIM
     Indication: PRODUCT USED FOR UNKNOWN INDICATION
     Route: 065
     Dates: start: 20200420
  74. BACTRIM [Concomitant]
     Active Substance: SULFAMETHOXAZOLE\TRIMETHOPRIM
     Route: 065
     Dates: start: 2010
  75. ENDONE [Concomitant]
     Active Substance: OXYCODONE HYDROCHLORIDE
     Indication: PRODUCT USED FOR UNKNOWN INDICATION
     Route: 065
     Dates: start: 20200512
  76. LACTULOSE. [Concomitant]
     Active Substance: LACTULOSE
     Route: 065
     Dates: start: 20200420
  77. MICROLAX [Concomitant]
     Indication: PRODUCT USED FOR UNKNOWN INDICATION
     Route: 065
     Dates: start: 20201110
  78. MICROLAX [Concomitant]
     Route: 065
     Dates: start: 2010
  79. QUESTRAN LITE [Concomitant]
     Route: 065
     Dates: start: 2010
  80. LORATADINE. [Concomitant]
     Active Substance: LORATADINE
     Indication: PRODUCT USED FOR UNKNOWN INDICATION
     Route: 048
     Dates: start: 20210203, end: 20210203
  81. PARACETAMOL [Concomitant]
     Active Substance: ACETAMINOPHEN
     Route: 048
     Dates: start: 20210216, end: 20210216
  82. ESOMEPRAZOLE. [Concomitant]
     Active Substance: ESOMEPRAZOLE MAGNESIUM
     Route: 048
     Dates: start: 20210216, end: 20210216
  83. ESOMEPRAZOLE. [Concomitant]
     Active Substance: ESOMEPRAZOLE MAGNESIUM
     Route: 048
     Dates: start: 20210317, end: 20210317

REACTIONS (1)
  - Bladder outlet obstruction [Not Recovered/Not Resolved]

NARRATIVE: CASE EVENT DATE: 20210424
